FAERS Safety Report 9540882 (Version 2)
Quarter: 2015Q4

REPORT INFORMATION
  Report Type: Report from Study
  Country: US (occurrence: US)
  Receive Date: 20130921
  Receipt Date: 20151029
  Transmission Date: 20160305
  Serious: Yes (Death)
  Sender: FDA-Public Use
  Company Number: US-ROCHE-1279077

PATIENT
  Sex: Female

DRUGS (11)
  1. ATROPINE. [Concomitant]
     Active Substance: ATROPINE
     Route: 040
  2. AVASTIN [Suspect]
     Active Substance: BEVACIZUMAB
     Route: 042
  3. DEXAMETHASONE. [Concomitant]
     Active Substance: DEXAMETHASONE
     Dosage: IN 100 ML NS 0.9%
     Route: 042
  4. AVASTIN [Suspect]
     Active Substance: BEVACIZUMAB
     Dosage: IN 100 ML NS 0.9%, 3.5 MG/KG X 54.4 KG
     Route: 042
  5. IRINOTECAN [Concomitant]
     Active Substance: IRINOTECAN
     Dosage: IN 500 ML NS 0.9%, 20 MG WASTED
     Route: 042
  6. AVASTIN [Suspect]
     Active Substance: BEVACIZUMAB
     Indication: BRAIN NEOPLASM MALIGNANT
     Dosage: IN 100 ML NS 0.9%, 70 MG WASTED
     Route: 042
     Dates: start: 20130611
  7. AVASTIN [Suspect]
     Active Substance: BEVACIZUMAB
     Indication: ANAPLASTIC ASTROCYTOMA
     Dosage: IN 100 ML NS 0.9%
     Route: 042
  8. AVASTIN [Suspect]
     Active Substance: BEVACIZUMAB
     Dosage: IN 100 ML NS 0.9%, 2.5 MG/KG
     Route: 042
  9. AVASTIN [Suspect]
     Active Substance: BEVACIZUMAB
     Route: 042
  10. PALONOSETRON HCL [Concomitant]
     Active Substance: PALONOSETRON HYDROCHLORIDE
     Route: 042
  11. DEXAMETHASONE. [Concomitant]
     Active Substance: DEXAMETHASONE
     Dosage: IN 100 ML NS 0.9%
     Route: 042

REACTIONS (2)
  - Off label use [Unknown]
  - Death [Fatal]
